FAERS Safety Report 16621459 (Version 2)
Quarter: 2019Q3

REPORT INFORMATION
  Report Type: Spontaneous
  Country: ES (occurrence: ES)
  Receive Date: 20190723
  Receipt Date: 20190816
  Transmission Date: 20191004
  Serious: Yes (Other)
  Sender: FDA-Public Use
  Company Number: PHHY2019ES065539

PATIENT
  Age: 20 Year
  Sex: Male

DRUGS (11)
  1. TOPOTECAN HYDROCHLORIDE. [Suspect]
     Active Substance: TOPOTECAN HYDROCHLORIDE
     Dosage: 0.7 MG/M2, QD (INFUSED OVER 30 MIN BEFORE ADMINISTRATION OF 131I-MIBG)
     Route: 065
  2. IOBENGUANE (131 I) [Suspect]
     Active Substance: IOBENGUANE I-131
     Dosage: 11.1/10.4 GBQ (FIRST ADMINISTERED ACTIVITY)
     Route: 050
  3. ONDANSETRON HYDROCHLORIDE. [Concomitant]
     Active Substance: ONDANSETRON HYDROCHLORIDE
     Indication: PRODUCT USED FOR UNKNOWN INDICATION
     Dosage: 20 ?G/KG, BID
     Route: 065
  4. ONDANSETRON HYDROCHLORIDE. [Concomitant]
     Active Substance: ONDANSETRON HYDROCHLORIDE
     Dosage: 40 G/KG, Q4H PRE MEDICATION
     Route: 065
  5. TOPOTECAN HYDROCHLORIDE. [Suspect]
     Active Substance: TOPOTECAN HYDROCHLORIDE
     Indication: NEUROBLASTOMA
     Dosage: 0.7 MG/M2, QD (SECOND THERAPEUTIC ADMINISTRATION, ON DAY 15)
     Route: 065
  6. NORMAL SALINE [Concomitant]
     Active Substance: SODIUM CHLORIDE
     Indication: DIURETIC THERAPY
     Dosage: (2.01 PER 1.73 M2/24 H FOR 4 H BEFORE TREATMENT)
     Route: 065
  7. IOBENGUANE (131 I) [Suspect]
     Active Substance: IOBENGUANE I-131
     Indication: NEUROBLASTOMA
     Dosage: 22.2/10.4 GBQ (SECOND ADMINISTERED ACTIVITY)
     Route: 050
  8. POTASSIUM IODIDE. [Concomitant]
     Active Substance: POTASSIUM IODIDE
     Indication: THYROID FUNCTION TEST NORMAL
  9. TOPOTECAN HYDROCHLORIDE. [Suspect]
     Active Substance: TOPOTECAN HYDROCHLORIDE
     Dosage: 0.7 MG/M2, QD
     Route: 050
  10. POTASSIUM IODIDE. [Concomitant]
     Active Substance: POTASSIUM IODIDE
     Indication: PROPHYLAXIS
     Dosage: UNK
     Route: 065
  11. NORMAL SALINE [Concomitant]
     Active Substance: SODIUM CHLORIDE
     Indication: NEUROBLASTOMA
     Dosage: IOBENGUANE DILUTED WITH NORMAL SODIUM CHLORIDE TO 50ML AND THEN INFUSED AS SOON AS POSSIBLE OVER
     Route: 041

REACTIONS (3)
  - Product use in unapproved indication [Unknown]
  - Thrombocytopenia [Unknown]
  - Anaemia [Unknown]
